FAERS Safety Report 10182749 (Version 1)
Quarter: 2014Q2

REPORT INFORMATION
  Report Type: Spontaneous
  Country: BR (occurrence: None)
  Receive Date: 20140516
  Receipt Date: 20140516
  Transmission Date: 20141212
  Serious: Yes (Other)
  Sender: FDA-Public Use
  Company Number: 2014BR00464

PATIENT
  Age: 82 Year
  Sex: Male

DRUGS (1)
  1. DONEPEZIL (DONEPEZIL HYDROCHLORIDE) TABLET [Suspect]
     Indication: DEMENTIA ALZHEIMER^S TYPE
     Dosage: 10 MG/DAY

REACTIONS (3)
  - Camptocormia [None]
  - Pleurothotonus [None]
  - Hallucination, visual [None]
